FAERS Safety Report 25143004 (Version 1)
Quarter: 2025Q2

REPORT INFORMATION
  Report Type: Spontaneous
  Country: US (occurrence: US)
  Receive Date: 20250401
  Receipt Date: 20250401
  Transmission Date: 20250716
  Serious: Yes (Hospitalization)
  Sender: AMGEN
  Company Number: US-AMGEN-USASP2025058777

PATIENT
  Age: 93 Year
  Sex: Female

DRUGS (2)
  1. TAVNEOS [Suspect]
     Active Substance: AVACOPAN
     Indication: Anti-neutrophil cytoplasmic antibody positive vasculitis
     Route: 048
     Dates: start: 2023
  2. TAVNEOS [Suspect]
     Active Substance: AVACOPAN
     Dosage: 2 DOSAGE FORM, BID/ TWICE A DAY
     Route: 048
     Dates: start: 2025

REACTIONS (2)
  - COVID-19 [Unknown]
  - Amnesia [Unknown]

NARRATIVE: CASE EVENT DATE: 20240101
